FAERS Safety Report 4969312-7 (Version None)
Quarter: 2006Q2

REPORT INFORMATION
  Report Type: 
  Country: None (occurrence: None)
  Receive Date: 20060411
  Receipt Date: 20060331
  Transmission Date: 20061013
  Serious: Yes (Death, Hospitalization)
  Sender: FDA-Public Use
  Company Number: GB-JNJFOC-20060200980

PATIENT
  Age: 60 Year
  Sex: Male

DRUGS (4)
  1. DURAGESIC-50 [Suspect]
     Route: 062
  2. LEVOMEPROMAZINE [Concomitant]
     Route: 065
  3. PREGABALIN [Concomitant]
     Route: 065
  4. METFORMIN [Concomitant]
     Route: 065

REACTIONS (4)
  - NEOPLASM MALIGNANT [None]
  - PYREXIA [None]
  - RESPIRATORY DEPRESSION [None]
  - THERAPEUTIC AGENT TOXICITY [None]
